FAERS Safety Report 18763904 (Version 1)
Quarter: 2021Q1

REPORT INFORMATION
  Report Type: Spontaneous
  Country: ES (occurrence: ES)
  Receive Date: 20210120
  Receipt Date: 20210120
  Transmission Date: 20210419
  Serious: Yes (Death, Other)
  Sender: FDA-Public Use
  Company Number: ES-TEVA-2021-ES-1870412

PATIENT
  Age: 76 Year
  Sex: Male
  Weight: 83 kg

DRUGS (4)
  1. LOPINAVIR + RITONAVIR [Interacting]
     Active Substance: LOPINAVIR\RITONAVIR
     Indication: COVID-19
     Dosage: 800 MILLIGRAM DAILY;
     Route: 048
     Dates: start: 20200323, end: 20200403
  2. FUROSEMIDA (1615A) [Interacting]
     Active Substance: FUROSEMIDE
     Indication: POLYURIA
     Dosage: THE RATE OF PC FUROSEMIDE VARIED THROUGHOUT THE DAYS, RECEIVING THE FOLLOWING DOSE OF FUROSEMIDE PER
     Route: 042
     Dates: start: 20200328, end: 20200331
  3. HIDROXICLOROQUINA (2143A) [Suspect]
     Active Substance: HYDROXYCHLOROQUINE
     Indication: COVID-19
     Dosage: 400 MG EVERY 12 H 1ST DAY, THEN 200 MG EVERY 12 H
     Route: 048
     Dates: start: 20200323, end: 20200401
  4. TOCILIZUMAB (8289A) [Interacting]
     Active Substance: TOCILIZUMAB
     Indication: COVID-19
     Dosage: 600 MG
     Route: 042
     Dates: start: 20200324, end: 20200325

REACTIONS (4)
  - Pancreatitis acute [Fatal]
  - Acute kidney injury [Recovered/Resolved]
  - Hypernatraemia [Recovered/Resolved]
  - Drug interaction [Unknown]

NARRATIVE: CASE EVENT DATE: 20200329
